FAERS Safety Report 4596334-0 (Version None)
Quarter: 2005Q1

REPORT INFORMATION
  Report Type: 
  Country: None (occurrence: None)
  Receive Date: 20050302
  Receipt Date: 20050301
  Transmission Date: 20050727
  Serious: Yes (Life-Threatening, Hospitalization)
  Sender: FDA-Public Use
  Company Number: PHNU2005DE01138

PATIENT
  Age: 87 Year
  Sex: Female

DRUGS (2)
  1. INDOMETHACIN [Suspect]
  2. VOLTAREN [Suspect]
     Indication: BACK PAIN
     Dosage: 50 MG DAILY
     Route: 048
     Dates: start: 20041224, end: 20041224

REACTIONS (4)
  - DEPENDENCE ON RESPIRATOR [None]
  - HYPERSENSITIVITY [None]
  - INTUBATION [None]
  - RESUSCITATION [None]
